FAERS Safety Report 10557667 (Version 1)
Quarter: 2014Q4

REPORT INFORMATION
  Report Type: Spontaneous
  Country: US (occurrence: None)
  Receive Date: 20141029
  Receipt Date: 20141029
  Transmission Date: 20150529
  Serious: Yes (Disabling)
  Sender: FDA-Public Use
  Company Number: USW201410-000238

PATIENT
  Age: 78 Year
  Sex: Male

DRUGS (1)
  1. APOKYN [Suspect]
     Active Substance: APOMORPHINE HYDROCHLORIDE
     Indication: PARKINSON^S DISEASE
     Dosage: 0.2ML, ONCE, SITE: ABDOMEN
     Route: 058
     Dates: start: 20141014, end: 20141014

REACTIONS (5)
  - Pallor [None]
  - Dizziness [None]
  - Vision blurred [None]
  - Nausea [None]
  - Blood pressure decreased [None]

NARRATIVE: CASE EVENT DATE: 20141014
